FAERS Safety Report 8628983 (Version 5)
Quarter: 2013Q4

REPORT INFORMATION
  Report Type: Report from Study
  Country: US (occurrence: US)
  Receive Date: 20120608
  Receipt Date: 20131101
  Transmission Date: 20140711
  Serious: Yes (Hospitalization, Disabling, Other)
  Sender: FDA-Public Use
  Company Number: US-MSD-2012SP029135

PATIENT
  Sex: Male

DRUGS (3)
  1. PEG-INTRON [Suspect]
     Indication: HEPATITIS C
     Dosage: UNK
     Dates: start: 20110722
  2. REBETOL [Suspect]
     Indication: HEPATITIS C
     Dosage: UNK
     Dates: start: 20110722
  3. VICTRELIS [Suspect]
     Indication: HEPATITIS C
     Dosage: UNK
     Dates: start: 20110820

REACTIONS (5)
  - Loss of consciousness [Unknown]
  - Feeling hot [Unknown]
  - Tinnitus [Unknown]
  - Bowel movement irregularity [Unknown]
  - Anaemia [Unknown]
